FAERS Safety Report 8234740-3 (Version None)
Quarter: 2012Q1

REPORT INFORMATION
  Report Type: 
  Country: None (occurrence: None)
  Receive Date: 20120322
  Receipt Date: 20120309
  Transmission Date: 20120608
  Serious: Yes (Other)
  Sender: FDA-Public Use
  Company Number: 2012AP000680

PATIENT
  Age: 35 Year
  Sex: Male

DRUGS (1)
  1. PAROXETINE HCL [Suspect]
     Indication: EMOTIONAL DISTRESS
     Dosage: 20 MG;QD

REACTIONS (22)
  - AUTOMATISM [None]
  - SUICIDAL IDEATION [None]
  - HOMICIDE [None]
  - NIGHTMARE [None]
  - AGGRESSION [None]
  - DEPRESSION [None]
  - IRRITABILITY [None]
  - IMPAIRED WORK ABILITY [None]
  - ERECTION INCREASED [None]
  - ANXIETY [None]
  - FEELING ABNORMAL [None]
  - PHYSICAL ASSAULT [None]
  - METABOLIC DISORDER [None]
  - TOXICITY TO VARIOUS AGENTS [None]
  - TACHYPHRENIA [None]
  - LIBIDO INCREASED [None]
  - DYSPHORIA [None]
  - DECREASED INTEREST [None]
  - AKATHISIA [None]
  - DRUG INTERACTION [None]
  - ANGER [None]
  - STAB WOUND [None]
